FAERS Safety Report 7652521-6 (Version None)
Quarter: 2011Q3

REPORT INFORMATION
  Report Type: 
  Country: None (occurrence: None)
  Receive Date: 20110803
  Receipt Date: 20110725
  Transmission Date: 20111222
  Serious: Yes (Hospitalization)
  Sender: FDA-Public Use
  Company Number: US-BAYER-2011-036420

PATIENT
  Age: 75 Year
  Sex: Male
  Weight: 79.365 kg

DRUGS (3)
  1. NEXAVAR [Suspect]
     Indication: HEPATIC NEOPLASM MALIGNANT
     Dosage: 400 MG, BID
     Route: 048
     Dates: start: 20110420
  2. ANTIHYPERTENSIVES [Concomitant]
     Indication: HYPERTENSION
  3. NEXAVAR [Suspect]
     Dosage: 200 MG, BID
     Route: 048
     Dates: start: 20110413

REACTIONS (8)
  - HYPOTENSION [None]
  - DEHYDRATION [None]
  - FATIGUE [None]
  - POOR QUALITY SLEEP [None]
  - DIARRHOEA [None]
  - THROMBOSIS [None]
  - MEMORY IMPAIRMENT [None]
  - ANGER [None]
